FAERS Safety Report 4758339-6 (Version None)
Quarter: 2005Q3

REPORT INFORMATION
  Report Type: 
  Country: None (occurrence: None)
  Receive Date: 20050826
  Receipt Date: 20050516
  Transmission Date: 20060218
  Serious: No
  Sender: FDA-Public Use
  Company Number: WAES 0505USA01848

PATIENT
  Age: 79 Year
  Sex: Female
  Weight: 69.4003 kg

DRUGS (7)
  1. ZETIA [Suspect]
     Indication: BLOOD CHOLESTEROL INCREASED
     Dosage: 10 MG/ PO
     Route: 048
     Dates: end: 20050201
  2. LIPITOR [Suspect]
     Indication: BLOOD CHOLESTEROL INCREASED
     Dosage: 20 MG/DAILY/PO
     Route: 048
     Dates: end: 20050201
  3. NIACIN [Suspect]
     Indication: BLOOD CHOLESTEROL INCREASED
     Dosage: PO
     Route: 048
     Dates: end: 20050201
  4. FOSAMAX [Concomitant]
  5. DILTIAZEM HYDROCHLORIDE [Concomitant]
  6. METOPROLOL [Concomitant]
  7. VITAMINS (UNSPECIFIED) [Concomitant]

REACTIONS (2)
  - MYALGIA [None]
  - NEURALGIA [None]
